FAERS Safety Report 8811339 (Version 1)
Quarter: 2012Q4

REPORT INFORMATION
  Report Type: Report from Study
  Country: FR (occurrence: FR)
  Receive Date: 20120927
  Receipt Date: 20120927
  Transmission Date: 20130627
  Serious: Yes (Hospitalization, Other)
  Sender: FDA-Public Use
  Company Number: FR-PFIZER INC-2012234259

PATIENT
  Age: 11 Year
  Sex: Female

DRUGS (3)
  1. GENOTROPIN [Suspect]
     Indication: TURNER^S SYNDROME
     Dosage: 28 IU, weekly
     Dates: start: 19930625
  2. ASPEGIC [Concomitant]
     Dosage: UNK
     Dates: start: 19941006
  3. PEDIAZOLE [Concomitant]
     Dosage: UNK
     Dates: start: 19941006

REACTIONS (1)
  - Virilism [Recovered/Resolved with Sequelae]
